FAERS Safety Report 18770469 (Version 1)
Quarter: 2021Q1

REPORT INFORMATION
  Report Type: Spontaneous
  Country: NL (occurrence: NL)
  Receive Date: 20210122
  Receipt Date: 20210122
  Transmission Date: 20210419
  Serious: Yes (Disabling)
  Sender: FDA-Public Use
  Company Number: NL-009507513-2101NLD008973

PATIENT
  Age: 61 Year
  Sex: Female
  Weight: 80 kg

DRUGS (10)
  1. [COMPOSITION UNSPECIFIED] [Concomitant]
     Active Substance: UNSPECIFIED INGREDIENT
     Dosage: UNK
  2. BISOPROLOL FUMARATE. [Concomitant]
     Active Substance: BISOPROLOL FUMARATE
     Dosage: IVABRADINE 5MG/ BISOPROLOL 10MG PERINDOPRIL 2MG ACETYLSALIC ACID 80MG EPLERENON 25 MG OMEPRAZOL 20MG
  3. FOSTER [Concomitant]
     Active Substance: BECLOMETHASONE\FORMOTEROL
     Dosage: FOSTER NEXTHALER INHALATATION POWDER 100/6MICROGRAM/DOSE 120 DOSES
  4. PROCORALAN [Concomitant]
     Active Substance: IVABRADINE
     Dosage: IVABRADINE 5MG/ BISOPROLOL 10MG PERINDOPRIL 2MG ACETYLSALIC ACID 80MG EPLERENON 25 MG OMEPRAZOL 20MG
  5. ASPIRIN. [Concomitant]
     Active Substance: ASPIRIN
     Dosage: IVABRADINE 5MG/ BISOPROLOL 10MG PERINDOPRIL 2MG ACETYLSALIC ACID 80MG EPLERENON 25 MG OMEPRAZOL 20MG
  6. EZETIMIBE (+) SIMVASTATIN [Suspect]
     Active Substance: EZETIMIBE\SIMVASTATIN
     Indication: CARDIAC DISORDER
     Dosage: IN THE EVENING 10 MG/ 40MG TABLETS A LOT OF PAINS
     Dates: start: 2010, end: 20200520
  7. EPLERENONE. [Concomitant]
     Active Substance: EPLERENONE
     Dosage: IVABRADINE 5MG/ BISOPROLOL 10MG PERINDOPRIL 2MG
  8. PERINDOPRIL ERBUMINE. [Concomitant]
     Active Substance: PERINDOPRIL ERBUMINE
     Dosage: IVABRADINE 5MG/ BISOPROLOL 10MG PERINDOPRIL 2MG ACETYLSALIC ACID 80MG EPLERENON 25 MG OMEPRAZOL 20MG
  9. OMEPRAZOLE. [Concomitant]
     Active Substance: OMEPRAZOLE
     Dosage: IVABRADINE 5MG/ BISOPROLOL 10MG PERINDOPRIL 2MG ACETYLSALIC ACID 80MG EPLERENON 25 MG OMEPRAZOL 20MG
  10. SPIRIVA [Concomitant]
     Active Substance: TIOTROPIUM BROMIDE MONOHYDRATE
     Dosage: INHALATION CAPSULE

REACTIONS (8)
  - Asthenia [Not Recovered/Not Resolved]
  - Abdominal pain [Not Recovered/Not Resolved]
  - Depressed mood [Not Recovered/Not Resolved]
  - Crying [Not Recovered/Not Resolved]
  - Neck pain [Not Recovered/Not Resolved]
  - Disturbance in attention [Not Recovered/Not Resolved]
  - Back pain [Not Recovered/Not Resolved]
  - Therapeutic response unexpected [Unknown]

NARRATIVE: CASE EVENT DATE: 20200520
